FAERS Safety Report 6739224-7 (Version None)
Quarter: 2010Q2

REPORT INFORMATION
  Report Type: 
  Country: None (occurrence: None)
  Receive Date: 20100525
  Receipt Date: 20100512
  Transmission Date: 20101027
  Serious: Yes (Hospitalization)
  Sender: FDA-Public Use
  Company Number: US-JNJFOC-20100504907

PATIENT
  Sex: Female
  Weight: 54 kg

DRUGS (18)
  1. DOXORUBICIN HCL [Suspect]
     Indication: OVARIAN CANCER
     Route: 042
  2. IMC-3G3 (RH ANTI-PDGFRA MAB) [Suspect]
     Indication: OVARIAN CANCER
     Route: 042
  3. HALOPERIDOL [Suspect]
     Indication: DEPRESSION
     Route: 065
  4. FENTANYL [Suspect]
     Indication: PAIN
     Route: 065
  5. ONDANSETRON [Suspect]
     Indication: DRUG USE FOR UNKNOWN INDICATION
     Route: 065
  6. MORPHINE [Suspect]
     Indication: PAIN
     Route: 065
  7. FLUOXETINE [Suspect]
     Indication: DEPRESSION
     Route: 065
  8. DESYREL [Suspect]
     Indication: DEPRESSION
     Route: 065
  9. LORAZEPAM [Suspect]
     Indication: DEPRESSION
     Route: 065
  10. MOVICAL [Concomitant]
     Indication: CONSTIPATION PROPHYLAXIS
     Route: 065
  11. ENOXAPARIN SODIUM [Concomitant]
     Indication: HAEMOSTASIS
     Route: 065
  12. COTRIM [Concomitant]
     Indication: DEVICE RELATED INFECTION
     Route: 065
  13. DEXAMETHASONE [Concomitant]
     Indication: PAIN
     Route: 065
  14. OMEPRAZOLE [Concomitant]
     Indication: GASTRITIS
     Route: 065
  15. PARACETAMOL [Concomitant]
     Indication: PYREXIA
     Route: 065
  16. AUGMENTIN '125' [Concomitant]
     Indication: PYREXIA
     Route: 065
  17. UROKINASE [Concomitant]
     Indication: HAEMOSTASIS
     Route: 065
  18. BLOOD TRANSFUSION [Concomitant]
     Indication: HAEMOGLOBIN DECREASED
     Route: 065

REACTIONS (1)
  - BRADYPHRENIA [None]
